FAERS Safety Report 7517982-1 (Version None)
Quarter: 2011Q2

REPORT INFORMATION
  Report Type: 
  Country: None (occurrence: None)
  Receive Date: 20110523
  Receipt Date: 20110331
  Transmission Date: 20111010
  Serious: Yes (Hospitalization)
  Sender: FDA-Public Use
  Company Number: 876036

PATIENT
  Age: 68 Year
  Sex: Male
  Weight: 74 kg

DRUGS (22)
  1. FAMOTIDINE [Concomitant]
  2. ISOSORBIDE MONONITRATE [Concomitant]
  3. SIMVASTATIN [Concomitant]
  4. TRAZODONE HCL [Concomitant]
  5. VANCOMYCIN HYDROCHLORIDE [Suspect]
     Indication: PNEUMONIA
     Dosage: 1250 MQ, Q12 HOURS INTRAVENOUS (NOT OTHERWISE SPECIFIED)
     Route: 042
     Dates: start: 20110324, end: 20110328
  6. ZOLPIDEM [Concomitant]
  7. VANCOMYCIN HCL [Suspect]
     Indication: PNEUMONIA
     Dosage: 1250 MG, Q12 HOURS   INTRAVENOUS (NOT OTHERWISE SPECIFIED)
     Route: 042
     Dates: start: 20110324, end: 20110328
  8. MIDAZOLAM HCL [Concomitant]
  9. DUONEB [Concomitant]
  10. PENTOXIFYLLINE [Concomitant]
  11. CEFAZOLIN [Concomitant]
  12. CEFEPIME HYDROCHLORIDE [Concomitant]
  13. METOPROLOL TARTRATE INJ BP 5MG/5ML (METOPROLOL) [Concomitant]
  14. PHENYLEPHRINE HCL [Concomitant]
  15. VANCOMYCIN HCL [Suspect]
     Indication: PNEUMONIA
     Dosage: 1250 MG, Q12 HOURS  INTRAVENOUS (NOT OTHERWISE SPECIFIED)
     Route: 042
     Dates: start: 20110324, end: 20110328
  16. (LORAZEPAM INJECTION, USP, 2MG/ML (LORAZEPAM) [Concomitant]
  17. VICODIN [Concomitant]
  18. DILTIAZEM HYDROCHLORIDE FOR INJECTION (100 MG/VIAL), ADD-VAN (DILTIAZE [Concomitant]
  19. ONDANSETRON [Concomitant]
  20. GABAPENTIN [Concomitant]
  21. VANCOMYCIN HYDROCHLORIDE [Suspect]
     Indication: PNEUMONIA
     Dosage: 1250 MG, Q12 HOURS   INTRAVENOUS (NOT OTHERWISE SPECIFIED)
     Route: 042
     Dates: start: 20110324, end: 20110328
  22. HALOPERIDOL [Concomitant]

REACTIONS (5)
  - RESPIRATORY FAILURE [None]
  - NEPHROPATHY TOXIC [None]
  - ARRHYTHMIA [None]
  - NON-SMALL CELL LUNG CANCER [None]
  - NEOPLASM PROGRESSION [None]
